FAERS Safety Report 7536502-9 (Version None)
Quarter: 2011Q2

REPORT INFORMATION
  Report Type: 
  Country: None (occurrence: None)
  Receive Date: 20110609
  Receipt Date: 20110531
  Transmission Date: 20111010
  Serious: Yes (Hospitalization)
  Sender: FDA-Public Use
  Company Number: JP-ASTRAZENECA-2011SE33301

PATIENT
  Age: 60 Year
  Sex: Female

DRUGS (4)
  1. SIGMART [Concomitant]
     Dosage: DOSE UNKNOWN
     Route: 065
  2. IRESSA [Suspect]
     Indication: NON-SMALL CELL LUNG CANCER
     Route: 048
     Dates: start: 20110516, end: 20110501
  3. IRESSA [Suspect]
     Route: 048
     Dates: start: 20110527
  4. DILTIAZEM HCL [Suspect]
     Dosage: DOSE UNKNOWN
     Route: 065

REACTIONS (1)
  - PRINZMETAL ANGINA [None]
